FAERS Safety Report 7314099-6 (Version None)
Quarter: 2011Q1

REPORT INFORMATION
  Report Type: 
  Country: None (occurrence: None)
  Receive Date: 20110225
  Receipt Date: 20100504
  Transmission Date: 20110831
  Serious: No
  Sender: FDA-Public Use
  Company Number: US-MYLANLABS-2010S1007807

PATIENT
  Sex: Male

DRUGS (2)
  1. AMNESTEEM [Suspect]
     Indication: ACNE
     Dates: start: 20100101, end: 20100401
  2. ACCUTANE [Suspect]
     Indication: ACNE
     Dates: end: 20100401

REACTIONS (3)
  - MOOD ALTERED [None]
  - ARTHRALGIA [None]
  - MYALGIA [None]
